FAERS Safety Report 6111654-6 (Version None)
Quarter: 2009Q1

REPORT INFORMATION
  Report Type: 
  Country: None (occurrence: None)
  Receive Date: 20090311
  Receipt Date: 20090227
  Transmission Date: 20090719
  Serious: Yes (Hospitalization, Other)
  Sender: FDA-Public Use
  Company Number: US-PFIZER INC-2009158257

PATIENT
  Sex: Female
  Weight: 59 kg

DRUGS (3)
  1. GEODON [Suspect]
     Indication: BIPOLAR DISORDER
  2. ROBITUSSIN ^ROBINS^ [Interacting]
     Indication: NASOPHARYNGITIS
     Dates: start: 20080101, end: 20080101
  3. LAMICTAL [Concomitant]
     Dosage: UNK

REACTIONS (6)
  - COORDINATION ABNORMAL [None]
  - DRUG INTERACTION [None]
  - INSOMNIA [None]
  - MANIA [None]
  - NASOPHARYNGITIS [None]
  - SOMNOLENCE [None]
